FAERS Safety Report 5373867-0 (Version None)
Quarter: 2007Q2

REPORT INFORMATION
  Report Type: 
  Country: None (occurrence: None)
  Receive Date: 20070615
  Receipt Date: 20060607
  Transmission Date: 20071010
  Serious: Yes (Other)
  Sender: FDA-Public Use
  Company Number: 200612148US

PATIENT
  Age: 73 Year
  Sex: Male
  Weight: 127.26 kg

DRUGS (7)
  1. LANTUS [Suspect]
     Indication: DIABETES MELLITUS NON-INSULIN-DEPENDENT
     Dosage: 33 IU QPM
     Dates: start: 20010301
  2. LANTUS [Suspect]
     Indication: DIABETES MELLITUS NON-INSULIN-DEPENDENT
     Dosage: 26 IU QPM
     Dates: start: 20060516
  3. ZOCOR [Concomitant]
  4. COUMADIN [Concomitant]
  5. ASPIRIN [Concomitant]
  6. ADALAT [Concomitant]
  7. ATORVASTATIN CALCIUM (LIPITOR) [Concomitant]

REACTIONS (7)
  - ASTHENIA [None]
  - BLOOD GLUCOSE DECREASED [None]
  - FEELING ABNORMAL [None]
  - HYPERHIDROSIS [None]
  - HYPOGLYCAEMIC COMA [None]
  - HYPOKALAEMIA [None]
  - PALLOR [None]
